FAERS Safety Report 7889294-8 (Version None)
Quarter: 2011Q4

REPORT INFORMATION
  Report Type: 
  Country: None (occurrence: None)
  Receive Date: 20111103
  Receipt Date: 20111025
  Transmission Date: 20120403
  Serious: Yes (Hospitalization)
  Sender: FDA-Public Use
  Company Number: US-BAXTER-2011BH032021

PATIENT
  Sex: Male

DRUGS (2)
  1. DIANEAL [Suspect]
     Indication: PERITONEAL DIALYSIS
     Route: 033
  2. DIANEAL [Suspect]
     Indication: PERITONEAL DIALYSIS
     Route: 033

REACTIONS (10)
  - PERITONITIS BACTERIAL [None]
  - VOMITING [None]
  - MEDICAL DEVICE COMPLICATION [None]
  - CONSTIPATION [None]
  - NAUSEA [None]
  - FLUID OVERLOAD [None]
  - DIABETES MELLITUS INADEQUATE CONTROL [None]
  - MENTAL STATUS CHANGES [None]
  - CONDITION AGGRAVATED [None]
  - DEHYDRATION [None]
